FAERS Safety Report 18768519 (Version 1)
Quarter: 2021Q1

REPORT INFORMATION
  Report Type: Spontaneous
  Country: US (occurrence: US)
  Receive Date: 20210121
  Receipt Date: 20210121
  Transmission Date: 20210419
  Serious: No
  Sender: FDA-Public Use
  Company Number: None

PATIENT
  Sex: Female

DRUGS (1)
  1. REPATHA [Suspect]
     Active Substance: EVOLOCUMAB
     Indication: MIGRAINE
     Dosage: ?          OTHER FREQUENCY:EVERY 2WEEKS;?
     Route: 058
     Dates: start: 20190109

REACTIONS (2)
  - Therapy interrupted [None]
  - Cholecystectomy [None]
